APPROVED DRUG PRODUCT: OMEPRAZOLE
Active Ingredient: OMEPRAZOLE
Strength: 20MG
Dosage Form/Route: TABLET, ORALLY DISINTEGRATING, DELAYED RELEASE;ORAL
Application: N209400 | Product #001
Applicant: DEXCEL PHARMA TECHNOLOGIES LTD
Approved: Jul 5, 2017 | RLD: Yes | RS: Yes | Type: OTC

PATENTS:
Patent 10835488 | Expires: Dec 8, 2036
Patent 10076494 | Expires: Dec 8, 2036